FAERS Safety Report 14908043 (Version 1)
Quarter: 2018Q2

REPORT INFORMATION
  Report Type: Report from Study
  Country: US (occurrence: US)
  Receive Date: 20180517
  Receipt Date: 20180517
  Transmission Date: 20180711
  Serious: Yes (Hospitalization)
  Sender: FDA-Public Use
  Company Number: US-MYLANLABS-2018M1030110

PATIENT
  Age: 5 Year
  Sex: Female

DRUGS (3)
  1. DIAZEPAM. [Suspect]
     Active Substance: DIAZEPAM
     Indication: STATUS EPILEPTICUS
     Dosage: TAPER STARTING AT 0.44 MG/KG/DAY DIVIDED TID AND DECREASING THE NUMBER OF ADMINISTRATIONS EVERY 2...
     Route: 048
  2. CLOBAZAM [Concomitant]
     Active Substance: CLOBAZAM
     Indication: SEIZURE
     Route: 065
  3. DIAZEPAM. [Suspect]
     Active Substance: DIAZEPAM
     Dosage: AT THE AGE OF 6 YEARS AND 4 MONTHS: TAPER STARTING AT 0.18 MG/KG/DAY DIVIDED BID AND DECREASING T...
     Route: 048

REACTIONS (2)
  - Fatigue [Unknown]
  - Treatment failure [Unknown]
